FAERS Safety Report 5775281-2 (Version None)
Quarter: 2008Q2

REPORT INFORMATION
  Report Type: 
  Country: None (occurrence: None)
  Receive Date: 20080616
  Receipt Date: 20080616
  Transmission Date: 20081010
  Serious: Yes (Hospitalization)
  Sender: FDA-Public Use
  Company Number: None

PATIENT
  Sex: Female
  Weight: 102 kg

DRUGS (14)
  1. TAXOL [Suspect]
     Dosage: 456 MG
  2. ALPRAZOLAM [Concomitant]
  3. ATIVAN [Concomitant]
  4. EMEND [Concomitant]
  5. ESTRASE [Concomitant]
  6. EXTRA STRENGTH TYLENOL [Concomitant]
  7. HYDROCHLOROTHIAZIDE [Concomitant]
  8. LEXAPRO [Concomitant]
  9. LOVENOX [Concomitant]
  10. OXYCODONE/ACETOMINPHEN [Concomitant]
  11. PREVACID [Concomitant]
  12. PROCHOLOPERAZINE [Concomitant]
  13. WELLBUTRIN [Concomitant]
  14. ZOFRAN [Concomitant]

REACTIONS (2)
  - DIARRHOEA [None]
  - NAUSEA [None]
